FAERS Safety Report 13284103 (Version 2)
Quarter: 2017Q1

REPORT INFORMATION
  Report Type: Spontaneous
  Country: MA (occurrence: MA)
  Receive Date: 20170301
  Receipt Date: 20170308
  Transmission Date: 20170428
  Serious: Yes (Death, Hospitalization)
  Sender: FDA-Public Use
  Company Number: MA-PFIZER INC-2017085716

PATIENT
  Age: 12 Year
  Sex: Male

DRUGS (3)
  1. GENOTROPIN [Suspect]
     Active Substance: SOMATROPIN
     Dosage: 5.3 UNIT NOT PROVIDED
     Dates: start: 20140520
  2. LEVOTHYROX [Suspect]
     Active Substance: LEVOTHYROXINE
  3. HYDROCORTISONE. [Suspect]
     Active Substance: HYDROCORTISONE

REACTIONS (2)
  - Meningitis [Fatal]
  - Hyperthermia [Fatal]

NARRATIVE: CASE EVENT DATE: 201612
